FAERS Safety Report 8793049 (Version 2)
Quarter: 2015Q1

REPORT INFORMATION
  Report Type: Report from Study
  Country: US (occurrence: US)
  Receive Date: 20120918
  Receipt Date: 20150312
  Transmission Date: 20150721
  Serious: Yes (Death)
  Sender: FDA-Public Use
  Company Number: US-ROCHE-1123362

PATIENT
  Sex: Female
  Weight: 75 kg

DRUGS (2)
  1. CAMPTOSAR [Concomitant]
     Active Substance: IRINOTECAN HYDROCHLORIDE
  2. AVASTIN [Suspect]
     Active Substance: BEVACIZUMAB
     Indication: BRAIN NEOPLASM MALIGNANT
     Dosage: DATES OF SERVICE ON 16/AUG/2006AND 26/SEP/2006
     Route: 042

REACTIONS (2)
  - Off label use [Unknown]
  - Death [Fatal]
